FAERS Safety Report 12228408 (Version 1)
Quarter: 2016Q1

REPORT INFORMATION
  Report Type: Spontaneous
  Country: US (occurrence: None)
  Receive Date: 20160330
  Receipt Date: 20160330
  Transmission Date: 20160526
  Serious: Yes (Disabling)
  Sender: FDA-Public Use
  Company Number: None

PATIENT
  Age: 84 Year
  Sex: Male
  Weight: 56.7 kg

DRUGS (1)
  1. COMBIGAN [Suspect]
     Active Substance: BRIMONIDINE TARTRATE\TIMOLOL MALEATE
     Indication: GLAUCOMA
     Dosage: TWICE DAY/AT 12 HOURS EYE DROP
     Route: 047
     Dates: start: 20151103, end: 20160220

REACTIONS (9)
  - Erythema of eyelid [None]
  - Blindness unilateral [None]
  - Confusional state [None]
  - Chest pain [None]
  - Eyelid oedema [None]
  - Amnesia [None]
  - Eye haemorrhage [None]
  - Weight decreased [None]
  - Eyelids pruritus [None]
